FAERS Safety Report 17788306 (Version 19)
Quarter: 2021Q1

REPORT INFORMATION
  Report Type: Report from Study
  Country: None (occurrence: BE)
  Receive Date: 20200515
  Receipt Date: 20210210
  Transmission Date: 20210419
  Serious: Yes (Hospitalization)
  Sender: FDA-Public Use
  Company Number: BE-ABBVIE-20K-013-3401879-00

PATIENT
  Age: 72 Year
  Sex: Female

DRUGS (17)
  1. DUODOPA [Suspect]
     Active Substance: CARBIDOPA\LEVODOPA
     Dosage: MD=3ML, CD=2.4ML/HR DURING 16HRS, ED=1ML, ND=2.4ML/HR DURING?8HRS
     Route: 050
     Dates: start: 20200511, end: 20200519
  2. STALEVO [Concomitant]
     Active Substance: CARBIDOPA\ENTACAPONE\LEVODOPA
     Indication: PARKINSON^S DISEASE
     Dosage: FORM STRENGTH: 100MG/25MG/200MG; UNIT DOSE: 1 TABLET
     Route: 048
  3. DUODOPA [Suspect]
     Active Substance: CARBIDOPA\LEVODOPA
     Dosage: MD=0ML, CD=2.8ML/HR DURING 16HRS, ED=1ML
     Route: 050
     Dates: start: 20200519, end: 20200528
  4. DUODOPA [Suspect]
     Active Substance: CARBIDOPA\LEVODOPA
     Dosage: MD=0ML, CD=3ML/HR DURING 16HRS, ED=1,8ML
     Route: 050
     Dates: start: 20200603, end: 20200605
  5. DUODOPA [Suspect]
     Active Substance: CARBIDOPA\LEVODOPA
     Dosage: MD=5ML, CD=3.8ML/HR DURING 16HRS, ED=1.5ML
     Route: 050
     Dates: start: 20200929, end: 20201009
  6. DUODOPA [Suspect]
     Active Substance: CARBIDOPA\LEVODOPA
     Indication: PARKINSON^S DISEASE
     Dosage: MD=5ML, CD=2.4ML/HR DURING 16HRS, ED=1ML
     Route: 050
     Dates: start: 20200506, end: 20200511
  7. PROLOPA HBS [Concomitant]
     Active Substance: BENSERAZIDE\LEVODOPA
     Indication: PARKINSON^S DISEASE
     Dosage: FORM STRENGTH: 100MG/25MG; UNIT DOSE: 1 CAPSULE
     Route: 048
  8. DUODOPA [Suspect]
     Active Substance: CARBIDOPA\LEVODOPA
     Dosage: MD=3ML, CD=3.2ML/HR DURING 16HRS, ED=2ML; ND=3ML/HR DURING 8HRS
     Route: 050
     Dates: start: 20200605, end: 202009
  9. DUODOPA [Suspect]
     Active Substance: CARBIDOPA\LEVODOPA
     Dosage: MD=5ML, CD=3.4ML/HR DURING 16HRS, ED=1.5ML
     Route: 050
     Dates: start: 20200924, end: 20200929
  10. DUODOPA [Suspect]
     Active Substance: CARBIDOPA\LEVODOPA
     Dosage: MD=5ML, CD=3.4ML/HR DURING 16HRS, ED=1.5ML
     Route: 050
     Dates: start: 20201009, end: 20201109
  11. DUODOPA [Suspect]
     Active Substance: CARBIDOPA\LEVODOPA
     Dosage: MD=5.3ML, CD=3ML/HR DURING 16HRS, ED=1.5ML
     Route: 050
     Dates: start: 20201112, end: 20201126
  12. DUODOPA [Suspect]
     Active Substance: CARBIDOPA\LEVODOPA
     Dosage: MD= 5.0 ML, CD= 3.5 ML/HR DURING 16HRS, ED= 1.5 ML, ND= 3.5 ML/HR DURING 8HRS
     Route: 050
     Dates: start: 20210203
  13. DUODOPA [Suspect]
     Active Substance: CARBIDOPA\LEVODOPA
     Dosage: MD=0ML, CD=3.2ML/HR DURING 16HRS, ED=2ML
     Route: 050
     Dates: start: 20200605, end: 2020
  14. DUODOPA [Suspect]
     Active Substance: CARBIDOPA\LEVODOPA
     Dosage: MD=3ML, CD=3ML/HR DURING 16HRS, ED=1,5ML; ND=3ML/HR DURING 8HRS
     Route: 050
     Dates: start: 20200528, end: 20200603
  15. DUODOPA [Suspect]
     Active Substance: CARBIDOPA\LEVODOPA
     Dosage: MD= 4.0 ML, CD= 3.2 ML/HR DURING 16HRS, ED= 1.5 ML, ND= 3.2 ML/?HR DURING 8HRS
     Route: 050
     Dates: start: 20201126, end: 20210112
  16. DUODOPA [Suspect]
     Active Substance: CARBIDOPA\LEVODOPA
     Dosage: MD= 4.0 ML, CD= 3.3 ML/HR DURING 16HRS, ED= 1.5 ML, ND= 3.2 ML/HR DURING 8HRS
     Route: 050
     Dates: start: 20210112, end: 20210203
  17. DUODOPA [Suspect]
     Active Substance: CARBIDOPA\LEVODOPA
     Dosage: MD=5ML, CD=3.2ML/HR DURING 16HRS, ED=1.5ML
     Route: 050
     Dates: start: 20201109, end: 20201112

REACTIONS (37)
  - Stoma site pain [Recovered/Resolved]
  - Medical device site pain [Unknown]
  - Medical device site irritation [Unknown]
  - Intentional device use issue [Unknown]
  - Tremor [Not Recovered/Not Resolved]
  - Headache [Unknown]
  - Burning sensation [Recovered/Resolved]
  - Dysstasia [Unknown]
  - Mobility decreased [Not Recovered/Not Resolved]
  - Underdose [Not Recovered/Not Resolved]
  - Depression [Unknown]
  - Pain [Recovered/Resolved]
  - Stoma site hypergranulation [Unknown]
  - Device dislocation [Recovered/Resolved]
  - Malaise [Unknown]
  - Gait disturbance [Not Recovered/Not Resolved]
  - Dyskinesia [Not Recovered/Not Resolved]
  - Motor dysfunction [Not Recovered/Not Resolved]
  - Feeling abnormal [Not Recovered/Not Resolved]
  - Abdominal pain [Not Recovered/Not Resolved]
  - Hallucination [Unknown]
  - Gambling [Not Recovered/Not Resolved]
  - Therapeutic product effect incomplete [Unknown]
  - Musculoskeletal stiffness [Unknown]
  - Fatigue [Not Recovered/Not Resolved]
  - Stoma site irritation [Unknown]
  - Stoma site pain [Not Recovered/Not Resolved]
  - Device kink [Unknown]
  - Apathy [Unknown]
  - Back pain [Unknown]
  - Muscle rigidity [Not Recovered/Not Resolved]
  - Hypertension [Unknown]
  - Freezing phenomenon [Unknown]
  - On and off phenomenon [Unknown]
  - Intentional product misuse [Not Recovered/Not Resolved]
  - Muscle rigidity [Recovered/Resolved]
  - Device dislocation [Recovered/Resolved]

NARRATIVE: CASE EVENT DATE: 2020
